FAERS Safety Report 7275576-X (Version None)
Quarter: 2011Q1

REPORT INFORMATION
  Report Type: 
  Country: None (occurrence: None)
  Receive Date: 20110131
  Receipt Date: 20110131
  Transmission Date: 20110831
  Serious: Yes (Life-Threatening, Other)
  Sender: FDA-Public Use
  Company Number: None

PATIENT
  Age: 52 Year
  Sex: Male
  Weight: 89.8122 kg

DRUGS (1)
  1. ALCOHOL PREP PADS ISOPROPYL ALCOHOL USP, 70% V/V SELECT MEDICAL PRODUC [Suspect]
     Dosage: ONE ALCOHOL PREP PAD DAILY TOP
     Route: 061
     Dates: start: 20110103, end: 20110106

REACTIONS (11)
  - RETCHING [None]
  - MUSCULOSKELETAL STIFFNESS [None]
  - PYREXIA [None]
  - BACILLUS INFECTION [None]
  - CHILLS [None]
  - PRODUCT QUALITY ISSUE [None]
  - ABDOMINAL PAIN UPPER [None]
  - ASTHENIA [None]
  - NAUSEA [None]
  - HEADACHE [None]
  - HYPERHIDROSIS [None]
